FAERS Safety Report 19221008 (Version 1)
Quarter: 2021Q2

REPORT INFORMATION
  Report Type: Spontaneous
  Country: US (occurrence: US)
  Receive Date: 20210506
  Receipt Date: 20210506
  Transmission Date: 20210717
  Serious: Yes (Life-Threatening, Hospitalization, Other)
  Sender: FDA-Public Use
  Company Number: US-AUROBINDO-AUR-APL-2021-017502

PATIENT
  Age: 58 Year
  Sex: Male

DRUGS (3)
  1. CIPROFLOXACIN. [Suspect]
     Active Substance: CIPROFLOXACIN
     Indication: URINARY TRACT INFECTION
     Dosage: UNK
     Route: 065
  2. FLUCONAZOLE. [Suspect]
     Active Substance: FLUCONAZOLE
     Indication: URINARY TRACT INFECTION
     Dosage: UNK
     Route: 065
  3. FLUCONAZOLE. [Concomitant]
     Active Substance: FLUCONAZOLE
     Indication: URINARY TRACT INFECTION
     Dosage: UNK
     Route: 065

REACTIONS (10)
  - Fournier^s gangrene [Unknown]
  - Scrotal pain [Unknown]
  - Leukocytosis [Unknown]
  - Penile erythema [Unknown]
  - Penile oedema [Unknown]
  - Hyperglycaemia [Unknown]
  - Metabolic acidosis [Unknown]
  - Candida infection [Unknown]
  - Sinus tachycardia [Unknown]
  - Penile pain [Unknown]
